FAERS Safety Report 9382522 (Version 1)
Quarter: 2013Q3

REPORT INFORMATION
  Report Type: Spontaneous
  Country: GT (occurrence: GT)
  Receive Date: 20130703
  Receipt Date: 20130703
  Transmission Date: 20140515
  Serious: Yes (Other)
  Sender: FDA-Public Use
  Company Number: GT-GLAXOSMITHKLINE-A1028889A

PATIENT
  Age: 80 Year
  Sex: Female

DRUGS (3)
  1. VALTREX [Suspect]
     Indication: GENITAL HERPES
     Dosage: 2G TWICE PER DAY
     Route: 048
  2. PAIN KILLERS [Concomitant]
  3. CATAFLAM [Concomitant]

REACTIONS (3)
  - Renal failure [Recovered/Resolved]
  - Blood creatinine increased [Recovered/Resolved]
  - Dysuria [Recovered/Resolved]
